FAERS Safety Report 13423633 (Version 6)
Quarter: 2017Q2

REPORT INFORMATION
  Report Type: Spontaneous
  Country: CA (occurrence: CA)
  Receive Date: 20170410
  Receipt Date: 20170628
  Transmission Date: 20170830
  Serious: Yes (Other)
  Sender: FDA-Public Use
  Company Number: CA-CELLTRION INC.-2017CA002980

PATIENT

DRUGS (4)
  1. CORTICOSTEROID NOS [Concomitant]
     Active Substance: CORTICOSTEROID NOS
     Dosage: UNK, PRN
     Route: 065
  2. INFLECTRA [Suspect]
     Active Substance: INFLIXIMAB-DYYB
     Indication: COLITIS ULCERATIVE
     Dosage: 620 UNK, EVERY 2 WEEKS, THEN EVERY 8 WEEKS FOR 12 MONTHS
     Route: 042
     Dates: start: 20160822, end: 2017
  3. ASACOL [Concomitant]
     Active Substance: MESALAMINE
     Dosage: 6 DF, DAILY
     Route: 048
  4. PREDNISONE. [Concomitant]
     Active Substance: PREDNISONE
     Dosage: 20 MG, DAILY
     Route: 065

REACTIONS (3)
  - Nausea [Recovered/Resolved]
  - Headache [Unknown]
  - Haematochezia [Unknown]

NARRATIVE: CASE EVENT DATE: 201702
